FAERS Safety Report 5068145-3 (Version None)
Quarter: 2006Q3

REPORT INFORMATION
  Report Type: 
  Country: None (occurrence: None)
  Receive Date: 20060802
  Receipt Date: 20060621
  Transmission Date: 20061208
  Serious: Yes (Other)
  Sender: FDA-Public Use
  Company Number: US-BRISTOL-MYERS SQUIBB COMPANY-13421672

PATIENT
  Sex: Male
  Weight: 3 kg

DRUGS (6)
  1. EFAVIRENZ [Suspect]
     Dosage: MOTHER INITIATED ORAL EFAVIRENZ THERAPY ON 28-FEB-2001
     Route: 064
  2. COMBIVIR [Suspect]
     Dosage: MOTHER INITIATED ORAL THERAPY ON 22-JAN-1998 AND CONTINUED THERAPY AFTER DELIVERY.
     Route: 064
     Dates: end: 20060122
  3. NELFINAVIR [Suspect]
     Dosage: MOTHER'S ORAL THERAPY REMAINED ONGOING AFTER DELIVERY.
     Route: 064
     Dates: start: 20050916, end: 20060122
  4. ZIDOVUDINE [Suspect]
     Dosage: MOTHER RECEIVED THERAPY INTRAVENOUSLY.
     Route: 064
     Dates: start: 20060119, end: 20060122
  5. ZIDOVUDINE [Suspect]
     Route: 064
     Dates: start: 20060119, end: 20060122
  6. FOLATE [Concomitant]
     Route: 064

REACTIONS (6)
  - DRUG EXPOSURE DURING PREGNANCY [None]
  - EYELID PTOSIS [None]
  - HEMIPARESIS [None]
  - HYDROCELE [None]
  - PREGNANCY [None]
  - ULTRASOUND SCAN ABNORMAL [None]
